FAERS Safety Report 23634171 (Version 1)
Quarter: 2024Q1

REPORT INFORMATION
  Report Type: Spontaneous
  Country: US (occurrence: US)
  Receive Date: 20240314
  Receipt Date: 20240314
  Transmission Date: 20240409
  Serious: No
  Sender: FDA-Public Use
  Company Number: US-BRISTOL-MYERS SQUIBB COMPANY-2024-040866

PATIENT
  Age: 72 Year
  Sex: Female
  Weight: 48.897 kg

DRUGS (8)
  1. ELIQUIS [Suspect]
     Active Substance: APIXABAN
     Indication: Atrial fibrillation
     Route: 048
     Dates: start: 202308
  2. PROBIOTICS NOS [Concomitant]
     Active Substance: PROBIOTICS NOS
     Indication: Product used for unknown indication
  3. CHOLECALCIFEROL [Concomitant]
     Active Substance: CHOLECALCIFEROL
     Indication: Product used for unknown indication
  4. COBAMAMIDE [Concomitant]
     Active Substance: COBAMAMIDE
     Indication: Product used for unknown indication
  5. OMEGA 3 ALGAE OIL [Concomitant]
     Indication: Product used for unknown indication
  6. XANAX [Concomitant]
     Active Substance: ALPRAZOLAM
     Indication: Insomnia
  7. XANAX [Concomitant]
     Active Substance: ALPRAZOLAM
     Indication: Anxiety
  8. BUTAL [Concomitant]
     Indication: Migraine

REACTIONS (7)
  - Dizziness [Unknown]
  - Headache [Unknown]
  - Dysphagia [Unknown]
  - Ocular hyperaemia [Unknown]
  - Contusion [Unknown]
  - Spinal pain [Unknown]
  - Pain [Unknown]

NARRATIVE: CASE EVENT DATE: 20230801
